FAERS Safety Report 5349856-9 (Version None)
Quarter: 2007Q2

REPORT INFORMATION
  Report Type: 
  Country: None (occurrence: None)
  Receive Date: 20070607
  Receipt Date: 20070529
  Transmission Date: 20071010
  Serious: Yes (Other)
  Sender: FDA-Public Use
  Company Number: DE-PFIZER INC-2007027872

PATIENT
  Sex: Male
  Weight: 100 kg

DRUGS (11)
  1. INSPRA [Suspect]
     Route: 048
  2. OSYROL [Suspect]
  3. METOPROLOL SUCCINATE [Concomitant]
  4. RAMIPRIL [Concomitant]
  5. TORSEMIDE [Concomitant]
  6. EZETROL [Concomitant]
  7. ALNA [Concomitant]
  8. MARCUMAR [Concomitant]
  9. FRAGMIN [Concomitant]
     Route: 058
  10. ACTRAPHANE HM [Concomitant]
  11. PROTAPHAN [Concomitant]

REACTIONS (2)
  - GYNAECOMASTIA [None]
  - HAEMATURIA [None]
